FAERS Safety Report 21579181 (Version 1)
Quarter: 2022Q4

REPORT INFORMATION
  Report Type: Spontaneous
  Country: US (occurrence: US)
  Receive Date: 20221110
  Receipt Date: 20221110
  Transmission Date: 20230113
  Serious: No
  Sender: FDA-Public Use
  Company Number: US-SA-SAC20221109000173

PATIENT
  Age: 58 Year
  Sex: Female

DRUGS (2)
  1. AUBAGIO [Suspect]
     Active Substance: TERIFLUNOMIDE
     Indication: Multiple sclerosis
     Route: 048
  2. VUMERITY [Concomitant]
     Active Substance: DIROXIMEL FUMARATE

REACTIONS (2)
  - Flushing [Recovered/Resolved]
  - Alopecia [Recovering/Resolving]
